FAERS Safety Report 6793926-5 (Version None)
Quarter: 2010Q2

REPORT INFORMATION
  Report Type: 
  Country: None (occurrence: None)
  Receive Date: 20100624
  Receipt Date: 20090416
  Transmission Date: 20101027
  Serious: Yes (Hospitalization, Other)
  Sender: FDA-Public Use
  Company Number: US-PFIZER INC-2009181353

PATIENT
  Sex: Female

DRUGS (5)
  1. PROVERA [Suspect]
     Indication: HORMONE REPLACEMENT THERAPY
     Dosage: 2.5 MG, UNK
     Route: 048
     Dates: start: 19840101, end: 19990101
  2. PREMARIN [Suspect]
     Indication: HORMONE REPLACEMENT THERAPY
     Dosage: 0.625 MG, UNK
     Dates: start: 19840101, end: 19990101
  3. METOPROLOL [Concomitant]
     Indication: BLOOD PRESSURE
     Dosage: 100 MG, UNK
     Dates: start: 19800101
  4. LISINOPRIL [Concomitant]
     Indication: DIURETIC THERAPY
     Dosage: 20 MG, UNK
     Dates: start: 19800101
  5. HYDROCHLOROTHIAZIDE [Concomitant]
     Dosage: 50 MG, UNK
     Dates: start: 19800101

REACTIONS (5)
  - BACK DISORDER [None]
  - BREAST CANCER [None]
  - DIABETES MELLITUS [None]
  - GASTROINTESTINAL DISORDER [None]
  - HYPERTENSION [None]
